FAERS Safety Report 4310982-4 (Version None)
Quarter: 2004Q1

REPORT INFORMATION
  Report Type: 
  Country: None (occurrence: None)
  Receive Date: 20040304
  Receipt Date: 20040109
  Transmission Date: 20041129
  Serious: Yes (Hospitalization)
  Sender: FDA-Public Use
  Company Number: PHBS2004JP00711

PATIENT
  Age: 62 Year
  Sex: Male

DRUGS (7)
  1. DIOVAN [Suspect]
     Indication: HYPERTENSION
     Dosage: 80 MG, QD
     Route: 048
     Dates: start: 20031215, end: 20031228
  2. NORVASC [Concomitant]
     Indication: HYPERTENSION
     Dosage: 5 MG, UNK
     Route: 048
     Dates: start: 20031214, end: 20031230
  3. TRANDATE [Concomitant]
     Indication: HYPERTENSION
     Dosage: 300 MG, UNK
     Route: 048
     Dates: start: 20031217, end: 20031230
  4. PHENOBAL [Concomitant]
     Indication: CONVULSION
     Dosage: 100 MG, UNK
     Route: 030
     Dates: start: 20031213, end: 20031213
  5. ALEVIATIN [Concomitant]
     Indication: CONVULSION
     Dosage: 500 MG, UNK
     Route: 042
     Dates: start: 20031213, end: 20031214
  6. ALEVIATIN [Concomitant]
     Dosage: 300 MG, UNK
     Route: 048
     Dates: start: 20031215, end: 20031216
  7. NICARDIPINE HCL [Concomitant]
     Indication: HYPERTENSION
     Dosage: 36 ML, UNK
     Route: 042
     Dates: start: 20031213, end: 20031214

REACTIONS (8)
  - BLOOD POTASSIUM INCREASED [None]
  - BLOOD SODIUM DECREASED [None]
  - DISORIENTATION [None]
  - DIZZINESS [None]
  - FALL [None]
  - HUMERUS FRACTURE [None]
  - HYPERKALAEMIA [None]
  - HYPONATRAEMIA [None]
